FAERS Safety Report 10014005 (Version 5)
Quarter: 2014Q3

REPORT INFORMATION
  Report Type: Spontaneous
  Country: JP (occurrence: JP)
  Receive Date: 20140317
  Receipt Date: 20140707
  Transmission Date: 20150326
  Serious: Yes (Hospitalization)
  Sender: FDA-Public Use
  Company Number: JP-JNJFOC-20140305110

PATIENT
  Age: 61 Year
  Sex: Female
  Weight: 39 kg

DRUGS (21)
  1. DOXIL [Suspect]
     Active Substance: DOXORUBICIN HYDROCHLORIDE
     Indication: OVARIAN CANCER STAGE III
     Route: 041
     Dates: start: 20140205, end: 20140205
  2. CARBOPLATIN. [Concomitant]
     Active Substance: CARBOPLATIN
     Indication: OVARIAN CANCER
     Route: 065
     Dates: start: 201304
  3. HIRUDOID (HEPARINOID) [Concomitant]
     Indication: ASTEATOSIS
     Route: 061
     Dates: start: 20131211
  4. PRIMPERAN [Concomitant]
     Active Substance: METOCLOPRAMIDE HYDROCHLORIDE
     Indication: GASTRIC POLYPS
     Route: 048
  5. MAGMITT [Concomitant]
     Active Substance: MAGNESIUM OXIDE
     Indication: CONSTIPATION
     Route: 048
  6. BRUFEN [Concomitant]
     Active Substance: IBUPROFEN
     Indication: CHEMOTHERAPY
     Route: 048
     Dates: start: 20131211
  7. DOXIL [Suspect]
     Active Substance: DOXORUBICIN HYDROCHLORIDE
     Indication: OVARIAN CANCER STAGE III
     Route: 041
     Dates: start: 20131211, end: 20131211
  8. POLARAMIN [Concomitant]
     Active Substance: DEXCHLORPHENIRAMINE MALEATE
     Indication: CHEMOTHERAPY
     Route: 048
     Dates: start: 20131211
  9. ALINAMIN F [Concomitant]
     Active Substance: FURSULTIAMINE HYDROCHLORIDE
     Indication: MALAISE
     Route: 048
  10. GEMCITABINE [Concomitant]
     Active Substance: GEMCITABINE\GEMCITABINE HYDROCHLORIDE
     Indication: OVARIAN CANCER
     Route: 065
     Dates: start: 201304
  11. MEXILETINE HYDROCHLORIDE. [Concomitant]
     Active Substance: MEXILETINE HYDROCHLORIDE
     Indication: VENTRICULAR EXTRASYSTOLES
     Route: 048
  12. DOXIL [Suspect]
     Active Substance: DOXORUBICIN HYDROCHLORIDE
     Indication: OVARIAN CANCER STAGE III
     Route: 041
     Dates: start: 20140108, end: 20140108
  13. GASTER [Concomitant]
     Active Substance: FAMOTIDINE
     Indication: GASTRIC POLYPS
     Route: 048
  14. SELBEX [Concomitant]
     Active Substance: TEPRENONE
     Indication: GASTRIC POLYPS
     Route: 048
  15. TSUMURA DAIKENCHUTO EXTRACT GRANULES [Concomitant]
     Indication: CONSTIPATION
     Route: 048
  16. JUZENTAIHOTO [Concomitant]
     Indication: MALAISE
     Route: 048
  17. NEUVITA [Concomitant]
     Indication: MALAISE
     Route: 048
  18. BISOPROLOL FUMARATE. [Concomitant]
     Active Substance: BISOPROLOL FUMARATE
     Indication: VENTRICULAR EXTRASYSTOLES
     Route: 048
  19. DEXART [Concomitant]
     Active Substance: DEXAMETHASONE SODIUM PHOSPHATE
     Indication: CHEMOTHERAPY
     Route: 041
     Dates: start: 20131211, end: 20140205
  20. PYDOXAL [Concomitant]
     Active Substance: PYRIDOXAL
     Indication: CHEMOTHERAPY
     Route: 048
     Dates: start: 20131211
  21. TAURINE [Concomitant]
     Active Substance: TAURINE
     Indication: MALAISE
     Route: 048

REACTIONS (1)
  - Lung disorder [Recovering/Resolving]

NARRATIVE: CASE EVENT DATE: 201402
